FAERS Safety Report 4876462-2 (Version None)
Quarter: 2005Q4

REPORT INFORMATION
  Report Type: 
  Country: None (occurrence: None)
  Receive Date: 20051206
  Receipt Date: 20051020
  Transmission Date: 20060501
  Serious: No
  Sender: FDA-Public Use
  Company Number: USA0510111349

PATIENT
  Age: 36 Year
  Sex: Female

DRUGS (3)
  1. CYMBALTA [Suspect]
     Indication: DEPRESSION
     Dosage: 60 MG DAY
     Dates: start: 20050101
  2. LITHIUM [Concomitant]
  3. TOPAMAX [Concomitant]

REACTIONS (1)
  - HAIR TEXTURE ABNORMAL [None]
